FAERS Safety Report 4337229-7 (Version None)
Quarter: 2004Q2

REPORT INFORMATION
  Report Type: 
  Country: None (occurrence: None)
  Receive Date: 20040408
  Receipt Date: 20040326
  Transmission Date: 20050107
  Serious: Yes (Disabling, Other)
  Sender: FDA-Public Use
  Company Number: FR-SHR-04-023157

PATIENT
  Age: 3 Year
  Sex: Female

DRUGS (19)
  1. FLUDARA [Suspect]
     Indication: ACUTE MYELOID LEUKAEMIA
     Dosage: 17 MG, 1X/DAY, INTRAVENOUS
     Route: 042
     Dates: start: 20030621, end: 20030625
  2. CYTARABINE [Suspect]
     Indication: ACUTE MYELOID LEUKAEMIA
     Dosage: 110 MG, 1X/DAY, INTRAVENOUS
     Route: 042
     Dates: start: 20030621, end: 20030625
  3. NEUPOGEN [Suspect]
     Dosage: 110 MG UG/DAY, INTRA-AMNIOTIC
     Route: 012
     Dates: start: 20030621, end: 20030625
  4. AMBISOME [Suspect]
     Dosage: 40 MG, 1X/DAY, INTRAVENOUS
     Route: 042
     Dates: start: 20030623, end: 20030625
  5. BACTRIM [Concomitant]
  6. ONDANSETRON HCL [Concomitant]
  7. FORTUM (CEFTAZIDEIME PENTAHYDRATE) [Concomitant]
  8. AMIKACIN [Concomitant]
  9. VANCOMYCIN [Concomitant]
  10. PERFALGAN [Concomitant]
  11. FASTURTEC (RASBURICASE) [Concomitant]
  12. ZOVIRAX (ACICLOVIR SODIUM) [Concomitant]
  13. DAUNOXOME [Concomitant]
  14. HEPARIN [Concomitant]
  15. ARTIFICIAL TEARS [Concomitant]
  16. CHIBRO-CADRON (DEXAMETHASONE SODIUM PHOSPHATE) [Concomitant]
  17. POLARAMINE (DEXACHLORPHENIRAMINE MALEATE) [Concomitant]
  18. PLITICAN (ALIZAPRIDE HYDROCHLORIDE) [Concomitant]
  19. LOXEN [Concomitant]

REACTIONS (3)
  - BLINDNESS [None]
  - OPTIC NERVE DISORDER [None]
  - VASCULITIS CEREBRAL [None]
